FAERS Safety Report 5013469-9 (Version None)
Quarter: 2006Q2

REPORT INFORMATION
  Report Type: 
  Country: None (occurrence: None)
  Receive Date: 20060530
  Receipt Date: 20060426
  Transmission Date: 20061013
  Serious: Yes (Other)
  Sender: FDA-Public Use
  Company Number: 2006SE02413

PATIENT
  Age: 64 Year
  Sex: Male

DRUGS (5)
  1. SEROQUEL [Interacting]
     Indication: BIPOLAR DISORDER
     Route: 048
     Dates: start: 20060320
  2. CYMBALTA [Interacting]
     Indication: BIPOLAR DISORDER
     Route: 048
     Dates: start: 20060411
  3. ATARAX [Suspect]
  4. VALLERGAN [Suspect]
  5. LAMOTRIGINE [Concomitant]
     Dosage: DOSE TO BE INCREASED TO 200 MG GRADUALLY OVER SIX WEEKS
     Route: 048

REACTIONS (2)
  - DRUG INTERACTION [None]
  - TARDIVE DYSKINESIA [None]
